FAERS Safety Report 14435840 (Version 1)
Quarter: 2018Q1

REPORT INFORMATION
  Report Type: Spontaneous
  Country: US (occurrence: US)
  Receive Date: 20180124
  Receipt Date: 20180124
  Transmission Date: 20180509
  Serious: No
  Sender: FDA-Public Use
  Company Number: None

PATIENT
  Age: 8 Year
  Sex: Male
  Weight: 44.55 kg

DRUGS (1)
  1. MONTELUKAST [Suspect]
     Active Substance: MONTELUKAST SODIUM
     Indication: ASTHMA
     Route: 048
     Dates: start: 20170327, end: 20180101

REACTIONS (7)
  - Sleep terror [None]
  - Depression [None]
  - Disturbance in attention [None]
  - Suicidal ideation [None]
  - Irritability [None]
  - Aggression [None]
  - Weight increased [None]

NARRATIVE: CASE EVENT DATE: 20170522
